FAERS Safety Report 9274927 (Version 2)
Quarter: 2013Q2

REPORT INFORMATION
  Report Type: Spontaneous
  Country: FR (occurrence: FR)
  Receive Date: 20130507
  Receipt Date: 20130517
  Transmission Date: 20140414
  Serious: Yes (Hospitalization)
  Sender: FDA-Public Use
  Company Number: FR-009507513-1304FRA016878

PATIENT
  Age: 15 Year
  Sex: Female

DRUGS (4)
  1. AERIUS [Suspect]
     Dosage: 13 DF, ONCE
     Route: 048
     Dates: start: 20130322, end: 20130322
  2. CODOLIPRANE [Suspect]
     Dosage: 8 DF, ONCE
     Route: 048
     Dates: start: 20130322, end: 20130322
  3. SPASFON [Suspect]
     Dosage: 2 DF, ONCE
     Route: 048
     Dates: start: 20130322, end: 20130322
  4. TRIMEBUTINE [Suspect]
     Dosage: 5 DF, ONCE
     Route: 048
     Dates: start: 20130322, end: 20130322

REACTIONS (1)
  - Pancreatitis acute [Recovering/Resolving]
